FAERS Safety Report 7413216-7 (Version None)
Quarter: 2011Q2

REPORT INFORMATION
  Report Type: 
  Country: None (occurrence: None)
  Receive Date: 20110405
  Receipt Date: 20110317
  Transmission Date: 20111010
  Serious: Yes (Death)
  Sender: FDA-Public Use
  Company Number: 2011P1005356

PATIENT
  Age: 27 Year
  Sex: Male

DRUGS (3)
  1. HALOPERIDOL [Suspect]
  2. CITALOPRAM HYDROBROMIDE [Suspect]
  3. QUETIAPINE [Suspect]

REACTIONS (1)
  - COMPLETED SUICIDE [None]
